FAERS Safety Report 7125436-X (Version None)
Quarter: 2010Q4

REPORT INFORMATION
  Report Type: 
  Country: None (occurrence: None)
  Receive Date: 20101129
  Receipt Date: 20101123
  Transmission Date: 20110411
  Serious: Yes (Hospitalization)
  Sender: FDA-Public Use
  Company Number: TR-ABBOTT-10P-161-0682425-00

PATIENT
  Age: 30 Year
  Sex: Male
  Weight: 50 kg

DRUGS (3)
  1. HUMIRA [Suspect]
     Indication: ANKYLOSING SPONDYLITIS
     Route: 058
     Dates: start: 20091009
  2. ETODOLAC [Concomitant]
     Indication: PRODUCT USED FOR UNKNOWN INDICATION
     Dosage: 2 TIMES DAILY
  3. AZATHIOPURIM [Concomitant]
     Indication: PRODUCT USED FOR UNKNOWN INDICATION
     Dosage: 50 MG TWICE DAILY

REACTIONS (5)
  - GENERALISED ERYTHEMA [None]
  - INFECTION [None]
  - OCULAR HYPERAEMIA [None]
  - SKIN BURNING SENSATION [None]
  - VOMITING [None]
